FAERS Safety Report 10246958 (Version 4)
Quarter: 2015Q2

REPORT INFORMATION
  Report Type: Spontaneous
  Country: US (occurrence: US)
  Receive Date: 20140619
  Receipt Date: 20150626
  Transmission Date: 20150821
  Serious: Yes (Hospitalization, Disabling)
  Sender: FDA-Public Use
  Company Number: US-009507513-1406USA007303

PATIENT
  Sex: Male
  Weight: 90.7 kg

DRUGS (2)
  1. OMEPRAZOLE. [Concomitant]
     Active Substance: OMEPRAZOLE
     Indication: GASTROOESOPHAGEAL REFLUX DISEASE
     Dosage: 20 MG, BID
     Route: 048
     Dates: start: 20090812, end: 20130326
  2. PROPECIA [Suspect]
     Active Substance: FINASTERIDE
     Indication: ANDROGENETIC ALOPECIA
     Dosage: 1 MG, DAILY
     Route: 048
     Dates: start: 20110204, end: 20110716

REACTIONS (24)
  - Panic attack [Unknown]
  - Loss of libido [Unknown]
  - Sexual dysfunction [Unknown]
  - Fatigue [Unknown]
  - Anxiety [Unknown]
  - Ejaculation disorder [Unknown]
  - Muscle atrophy [Unknown]
  - Cognitive disorder [Unknown]
  - Thinking abnormal [Unknown]
  - Weight increased [Unknown]
  - Gynaecomastia [Unknown]
  - Testicular pain [Unknown]
  - Drug ineffective [Unknown]
  - Organic erectile dysfunction [Recovering/Resolving]
  - Ejaculation failure [Unknown]
  - Depression [Unknown]
  - Disturbance in attention [Unknown]
  - Personality change [Unknown]
  - Semen analysis abnormal [Unknown]
  - Reproductive tract disorder [Unknown]
  - Liposuction [Unknown]
  - Muscular weakness [Unknown]
  - Insomnia [Unknown]
  - Drug ineffective [Unknown]

NARRATIVE: CASE EVENT DATE: 2011
